FAERS Safety Report 9555650 (Version 3)
Quarter: 2013Q4

REPORT INFORMATION
  Report Type: Report from Study
  Country: CA (occurrence: CA)
  Receive Date: 20130926
  Receipt Date: 20131125
  Transmission Date: 20140711
  Serious: Yes (Death)
  Sender: FDA-Public Use
  Company Number: PHHY2013CA106124

PATIENT
  Age: 67 Year
  Sex: Male

DRUGS (2)
  1. EXJADE [Suspect]
     Indication: IRON OVERLOAD
     Dosage: 500 MG, QD
     Route: 048
     Dates: start: 201306
  2. EXJADE [Suspect]
     Dosage: 1000 MG, QD
     Route: 048

REACTIONS (7)
  - Death [Fatal]
  - Dehydration [Unknown]
  - Muscular weakness [Unknown]
  - General physical health deterioration [Unknown]
  - Wrong technique in drug usage process [Unknown]
  - Diarrhoea [Unknown]
  - Blood iron increased [Unknown]
